FAERS Safety Report 4777391-5 (Version None)
Quarter: 2005Q3

REPORT INFORMATION
  Report Type: 
  Country: None (occurrence: None)
  Receive Date: 20050915
  Receipt Date: 20050906
  Transmission Date: 20060218
  Serious: Yes (Disabling, Other)
  Sender: FDA-Public Use
  Company Number: 2005124527

PATIENT
  Age: 58 Year
  Sex: Male
  Weight: 117.9352 kg

DRUGS (6)
  1. LIPITOR [Suspect]
     Indication: BLOOD CHOLESTEROL INCREASED
     Dosage: 20 MG (20 MG, 1 IN 1 D), ORAL
     Route: 048
  2. ACETYLSALICYLIC ACID SRT [Concomitant]
  3. METOPROLOL TARTRATE [Concomitant]
  4. ISOSORBIDE (ISOSORBIDE) [Concomitant]
  5. LEVOTHYROXINE SODIUM [Concomitant]
  6. INSULIN [Concomitant]

REACTIONS (3)
  - ASTHENIA [None]
  - FIBROMYALGIA [None]
  - TREMOR [None]
